FAERS Safety Report 4668552-4 (Version None)
Quarter: 2005Q2

REPORT INFORMATION
  Report Type: 
  Country: None (occurrence: None)
  Receive Date: 20050523
  Receipt Date: 19971112
  Transmission Date: 20051028
  Serious: Yes (Death, Hospitalization)
  Sender: FDA-Public Use
  Company Number: JP-SOLVAY-PANC003970014

PATIENT
  Age: 53 Year
  Sex: Male
  Weight: 57.5 kg

DRUGS (7)
  1. LOXONIN [Concomitant]
     Indication: BACK PAIN
     Dosage: DAILY DOSE: 180 MILLIGRAM(S)
     Route: 048
     Dates: start: 19970712, end: 19970808
  2. CREON [Suspect]
     Indication: ADENOCARCINOMA PANCREAS
     Dosage: DAILY DOSE: 3 GRAM(S)
     Route: 048
     Dates: start: 19961228, end: 19990420
  3. SELBEX [Concomitant]
     Indication: BACK PAIN
     Dosage: DAILY DOSE: 3 DOSAGE FORM
     Route: 048
     Dates: start: 19970712, end: 19970808
  4. GASTER [Concomitant]
     Indication: GASTROINTESTINAL HAEMORRHAGE
     Dosage: DAILY DOSE: 20 MILLIGRAM(S)
     Route: 048
     Dates: start: 19971004, end: 19971031
  5. ACENALIN [Concomitant]
     Indication: ABDOMINAL DISTENSION
     Dosage: DAILY DOSE: 3 DOSAGE FORM
     Route: 048
     Dates: start: 19971004, end: 19971031
  6. LOPEMIN [Concomitant]
     Indication: DIARRHOEA
     Dosage: DAILY DOSE: 1 DOSAGE FORM
     Route: 048
     Dates: start: 19971101, end: 19971226
  7. BIOFERMIN [Concomitant]
     Indication: DIARRHOEA
     Dosage: DAILY DOSE: 3 GRAM(S)
     Route: 048
     Dates: start: 19971101, end: 19971128

REACTIONS (11)
  - ABDOMINAL PAIN [None]
  - ANAEMIA [None]
  - ANOREXIA [None]
  - BACK PAIN [None]
  - BLOOD CHOLESTEROL DECREASED [None]
  - DIARRHOEA [None]
  - GASTROINTESTINAL HAEMORRHAGE [None]
  - HYPOALBUMINAEMIA [None]
  - METASTASES TO LUNG [None]
  - PANCREATIC CARCINOMA RECURRENT [None]
  - PLATELET COUNT DECREASED [None]
